FAERS Safety Report 16941653 (Version 4)
Quarter: 2020Q1

REPORT INFORMATION
  Report Type: Report from Study
  Country: BR (occurrence: BR)
  Receive Date: 20191021
  Receipt Date: 20200212
  Transmission Date: 20200409
  Serious: Yes (Hospitalization, Other)
  Sender: FDA-Public Use
  Company Number: NVSC2019BR010819

PATIENT
  Age: 54 Year
  Sex: Male

DRUGS (4)
  1. VOTRIENT [Suspect]
     Active Substance: PAZOPANIB HYDROCHLORIDE
     Dosage: 2 DF, BID
     Route: 065
     Dates: end: 20200103
  2. MAREVAN [Concomitant]
     Active Substance: WARFARIN SODIUM
     Indication: COAGULOPATHY
     Dosage: 5 MG
     Route: 065
  3. VOTRIENT [Suspect]
     Active Substance: PAZOPANIB HYDROCHLORIDE
     Dosage: 400 MG, BID
     Route: 065
     Dates: end: 202001
  4. VOTRIENT [Suspect]
     Active Substance: PAZOPANIB HYDROCHLORIDE
     Indication: RENAL CANCER
     Dosage: 400 MG, BID
     Route: 065
     Dates: start: 201908

REACTIONS (26)
  - Vascular neoplasm [Unknown]
  - Abnormal faeces [Unknown]
  - Vomiting [Unknown]
  - Vomiting [Recovered/Resolved]
  - Abdominal discomfort [Recovered/Resolved]
  - Metastases to liver [Unknown]
  - Renal impairment [Unknown]
  - Drug ineffective [Unknown]
  - Flatulence [Unknown]
  - Taste disorder [Unknown]
  - Thrombosis [Unknown]
  - Intra-abdominal fluid collection [Recovered/Resolved]
  - Blood potassium increased [Unknown]
  - Diarrhoea [Recovered/Resolved]
  - Abdominal distension [Recovered/Resolved]
  - Abdominal discomfort [Unknown]
  - Asthenia [Recovered/Resolved]
  - Faeces soft [Unknown]
  - Eructation [Unknown]
  - Renal neoplasm [Unknown]
  - Faeces hard [Unknown]
  - Vomiting [Recovered/Resolved]
  - Appetite disorder [Unknown]
  - Weight increased [Unknown]
  - Alopecia [Recovered/Resolved]
  - Anxiety [Unknown]

NARRATIVE: CASE EVENT DATE: 201912
